FAERS Safety Report 6117198-X (Version None)
Quarter: 2009Q1

REPORT INFORMATION
  Report Type: 
  Country: None (occurrence: None)
  Receive Date: 20090314
  Receipt Date: 20090106
  Transmission Date: 20090719
  Serious: Yes (Other)
  Sender: FDA-Public Use
  Company Number: US-ABBOTT-09P-163-0495977-00

PATIENT
  Sex: Female
  Weight: 57.204 kg

DRUGS (4)
  1. HUMIRA [Suspect]
     Indication: RHEUMATOID ARTHRITIS
     Route: 058
  2. UNNAMED BLOOD PRESSURE MEDICATION [Concomitant]
     Indication: HYPERTENSION
  3. CELEBREX [Concomitant]
     Indication: DRUG USE FOR UNKNOWN INDICATION
  4. SUGAR PILL [Concomitant]
     Indication: DIABETES MELLITUS

REACTIONS (2)
  - HIP FRACTURE [None]
  - RASH [None]
